FAERS Safety Report 12512897 (Version 1)
Quarter: 2016Q2

REPORT INFORMATION
  Report Type: Spontaneous
  Country: CA (occurrence: None)
  Receive Date: 20160629
  Receipt Date: 20160629
  Transmission Date: 20160815
  Serious: Yes (Hospitalization, Disabling)
  Sender: FDA-Public Use
  Company Number: None

PATIENT
  Age: 63 Year
  Sex: Male
  Weight: 82.56 kg

DRUGS (10)
  1. ASA [Concomitant]
     Active Substance: ASPIRIN
  2. COENZYME Q10 [Concomitant]
     Active Substance: UBIDECARENONE
  3. AMLODAPINE [Concomitant]
  4. VITAMIN C [Concomitant]
     Active Substance: ASCORBIC ACID
  5. CHLORTHALIDONE. [Concomitant]
     Active Substance: CHLORTHALIDONE
  6. APO-LEVOFLOXACIN [Suspect]
     Active Substance: LEVOFLOXACIN
     Indication: RESPIRATORY TRACT INFECTION
     Dosage: 1 PILL 7 DAYS MOUTH
     Route: 048
     Dates: start: 20160225, end: 20160302
  7. VITAMIN B [Concomitant]
     Active Substance: VITAMIN B
  8. MAGNESIUM [Concomitant]
     Active Substance: MAGNESIUM
  9. REMERON [Concomitant]
     Active Substance: MIRTAZAPINE
  10. VITAMIN E [Concomitant]
     Active Substance: .ALPHA.-TOCOPHEROL

REACTIONS (12)
  - Arthralgia [None]
  - Amnesia [None]
  - Dyspnoea [None]
  - Myalgia [None]
  - General physical health deterioration [None]
  - Emotional disorder [None]
  - Neuropathy peripheral [None]
  - Exercise lack of [None]
  - Social problem [None]
  - Tremor [None]
  - Depression [None]
  - Mental disorder [None]
